FAERS Safety Report 6660307-4 (Version None)
Quarter: 2010Q1

REPORT INFORMATION
  Report Type: 
  Country: None (occurrence: None)
  Receive Date: 20100331
  Receipt Date: 20100319
  Transmission Date: 20100710
  Serious: No
  Sender: FDA-Public Use
  Company Number: 2010BI004436

PATIENT
  Age: 68 Year
  Sex: Female
  Weight: 127 kg

DRUGS (17)
  1. TYSABRI [Suspect]
     Indication: MULTIPLE SCLEROSIS
     Route: 042
     Dates: start: 20091012
  2. ULTRASE MD [Concomitant]
     Dosage: DOSE UNIT:2 UNKNOWN
  3. PRIMIDONE [Concomitant]
  4. FUROSEMIDE [Concomitant]
  5. METOCLOPRAMIDE HYDROCHLORIDE [Concomitant]
  6. LEVOTHYROXINE SODIUM [Concomitant]
  7. OMEPRAZOLE [Concomitant]
  8. OXYCONTIN [Concomitant]
  9. SEROQUEL XR [Concomitant]
  10. WARFARIN SODIUM [Concomitant]
  11. PROVIGIL [Concomitant]
  12. NITROFURANTOIN [Concomitant]
  13. TOPAMAX [Concomitant]
  14. ATENOLOL [Concomitant]
  15. SPIRONOLACTONE [Concomitant]
  16. LOVASTATIN [Concomitant]
  17. HEPARIN [Concomitant]

REACTIONS (6)
  - ARTHROPATHY [None]
  - FATIGUE [None]
  - INFLUENZA [None]
  - INTENTION TREMOR [None]
  - PRODUCTIVE COUGH [None]
  - PULMONARY CONGESTION [None]
